FAERS Safety Report 4912592-4 (Version None)
Quarter: 2006Q1

REPORT INFORMATION
  Report Type: 
  Country: None (occurrence: None)
  Receive Date: 20060215
  Receipt Date: 20060213
  Transmission Date: 20060701
  Serious: Yes (Hospitalization)
  Sender: FDA-Public Use
  Company Number: MX-GLAXOSMITHKLINE-A0593717A

PATIENT
  Age: 9 Year
  Sex: Female

DRUGS (2)
  1. SERETIDE [Suspect]
     Indication: ASTHMA
     Route: 055
     Dates: start: 20060210
  2. SINGULAIR [Suspect]
     Indication: ASTHMA
     Route: 055
     Dates: start: 20060210

REACTIONS (4)
  - ASTHMA [None]
  - ASTHMATIC CRISIS [None]
  - CYANOSIS [None]
  - RESPIRATORY FAILURE [None]
